FAERS Safety Report 7750357-9 (Version None)
Quarter: 2011Q3

REPORT INFORMATION
  Report Type: 
  Country: None (occurrence: None)
  Receive Date: 20110914
  Receipt Date: 20110912
  Transmission Date: 20111222
  Serious: No
  Sender: FDA-Public Use
  Company Number: US-PFIZER INC-2011214993

PATIENT
  Sex: Male

DRUGS (1)
  1. CHILDREN'S ADVIL COLD [Suspect]
     Dosage: UNK

REACTIONS (1)
  - URTICARIA [None]
